FAERS Safety Report 9648056 (Version 3)
Quarter: 2014Q2

REPORT INFORMATION
  Report Type: Spontaneous
  Country: US (occurrence: US)
  Receive Date: 20131028
  Receipt Date: 20140402
  Transmission Date: 20141212
  Serious: No
  Sender: FDA-Public Use
  Company Number: US-PFIZER INC-2013306290

PATIENT
  Age: 61 Year
  Sex: Female
  Weight: 126.8 kg

DRUGS (3)
  1. LYRICA [Suspect]
     Indication: FIBROMYALGIA
     Dosage: 50 MG, 2X/DAY
     Dates: start: 201308
  2. LYRICA [Suspect]
     Dosage: 50 MG, 1X/DAY
     Dates: start: 201402, end: 201402
  3. ELIQUIS [Concomitant]
     Indication: ANTICOAGULANT THERAPY
     Dosage: 5 MG, 2X/DAY

REACTIONS (4)
  - Therapeutic response changed [Unknown]
  - Pre-existing condition improved [Unknown]
  - Drug withdrawal syndrome [Unknown]
  - Pain [Unknown]
